FAERS Safety Report 9822479 (Version 1)
Quarter: 2014Q1

REPORT INFORMATION
  Report Type: Spontaneous
  Country: US (occurrence: US)
  Receive Date: 20140116
  Receipt Date: 20140116
  Transmission Date: 20141002
  Serious: No
  Sender: FDA-Public Use
  Company Number: US-ORAPHARMA-QUINORA-2012-013

PATIENT
  Sex: 0

DRUGS (1)
  1. ARESTIN [Suspect]
     Indication: GINGIVITIS
     Dosage: UNK
     Dates: start: 20120328, end: 20120328

REACTIONS (1)
  - Breast feeding [Not Recovered/Not Resolved]
